FAERS Safety Report 15607154 (Version 1)
Quarter: 2018Q4

REPORT INFORMATION
  Report Type: Spontaneous
  Country: US (occurrence: US)
  Receive Date: 20181112
  Receipt Date: 20181112
  Transmission Date: 20190205
  Serious: Yes (Death)
  Sender: FDA-Public Use
  Company Number: None

PATIENT
  Age: 70 Year
  Sex: Male

DRUGS (9)
  1. DOXYCYCL HYC [Concomitant]
  2. SOTALOL HCL [Concomitant]
     Active Substance: SOTALOL
  3. AZTREONAM. [Concomitant]
     Active Substance: AZTREONAM
  4. CLARITIN [Concomitant]
     Active Substance: LORATADINE
  5. VANCOMY/NACL [Concomitant]
  6. POTASSIUM [Concomitant]
     Active Substance: POTASSIUM
  7. FAMOTIDINE. [Concomitant]
     Active Substance: FAMOTIDINE
  8. PROMACTA [Suspect]
     Active Substance: ELTROMBOPAG OLAMINE
     Indication: IMMUNE THROMBOCYTOPENIC PURPURA
     Route: 048
     Dates: start: 20181012, end: 20181108
  9. LOSARTAN. [Concomitant]
     Active Substance: LOSARTAN

REACTIONS (1)
  - Death [None]

NARRATIVE: CASE EVENT DATE: 20181108
